FAERS Safety Report 5959176-7 (Version None)
Quarter: 2008Q4

REPORT INFORMATION
  Report Type: 
  Country: None (occurrence: None)
  Receive Date: 20081120
  Receipt Date: 20080718
  Transmission Date: 20090506
  Serious: Yes (Other)
  Sender: FDA-Public Use
  Company Number: A0727231A

PATIENT
  Age: 18 Year
  Sex: Female

DRUGS (3)
  1. BUPROPION HYDROCHLORIDE [Suspect]
     Indication: DISTURBANCE IN ATTENTION
     Dosage: 100MG TWICE PER DAY
     Route: 048
     Dates: start: 20000101, end: 20080301
  2. BUSPAR [Concomitant]
  3. ALLEGRA [Concomitant]

REACTIONS (2)
  - ABDOMINAL DISCOMFORT [None]
  - CONVULSION [None]
